FAERS Safety Report 4715888-4 (Version None)
Quarter: 2005Q3

REPORT INFORMATION
  Report Type: 
  Country: None (occurrence: None)
  Receive Date: 20050718
  Receipt Date: 20050707
  Transmission Date: 20060218
  Serious: Yes (Other)
  Sender: FDA-Public Use
  Company Number: US-ROCHE-410395

PATIENT
  Age: 48 Year
  Sex: Male
  Weight: 131.1 kg

DRUGS (13)
  1. NAPROSYN [Suspect]
     Indication: DRUG USE FOR UNKNOWN INDICATION
     Route: 065
  2. REMICADE [Suspect]
     Indication: CROHN'S DISEASE
     Dosage: FORM REPORTED AS LYOPHILIZED POWDER.
     Route: 042
     Dates: start: 20030615, end: 20041115
  3. ASACOL [Concomitant]
  4. PURINETHOL [Concomitant]
     Dates: start: 20040712
  5. PREDNISONE [Concomitant]
     Dosage: THERAPY STOPPED IN 2004 AND RE-STARTED.
  6. AMBIEN [Concomitant]
  7. VERAPAMIL ERT [Concomitant]
  8. PAROXETINE HCL [Concomitant]
  9. DIOVAN HCT [Concomitant]
  10. TOPROL-XL [Concomitant]
  11. METOPROLOL SUCCINATE [Concomitant]
  12. HYDROCODONE BITARTRATE [Concomitant]
  13. MERCAPTOPURINE [Concomitant]

REACTIONS (13)
  - CONNECTIVE TISSUE DISORDER [None]
  - DECREASED APPETITE [None]
  - JOINT EFFUSION [None]
  - JOINT SWELLING [None]
  - LUPUS-LIKE SYNDROME [None]
  - POLYARTHRITIS [None]
  - PYREXIA [None]
  - RASH PRURITIC [None]
  - RHEUMATOID ARTHRITIS [None]
  - SKIN INDURATION [None]
  - SKIN LESION [None]
  - SLEEP DISORDER [None]
  - VASCULITIS [None]
